FAERS Safety Report 9788253 (Version 1)
Quarter: 2013Q4

REPORT INFORMATION
  Report Type: Spontaneous
  Country: CA (occurrence: CA)
  Receive Date: 20131230
  Receipt Date: 20131230
  Transmission Date: 20140711
  Serious: Yes (Other)
  Sender: FDA-Public Use
  Company Number: CA-AMGEN-CANSP2013090538

PATIENT
  Age: 64 Year
  Sex: Female

DRUGS (3)
  1. NPLATE [Suspect]
     Indication: IMMUNE THROMBOCYTOPENIC PURPURA
     Dosage: UNK
     Route: 065
     Dates: start: 200912
  2. RITUXAN [Concomitant]
  3. PREDNISONE [Concomitant]

REACTIONS (1)
  - Thrombosis [Recovering/Resolving]
